FAERS Safety Report 5044822-5 (Version None)
Quarter: 2006Q3

REPORT INFORMATION
  Report Type: 
  Country: None (occurrence: None)
  Receive Date: 20060705
  Receipt Date: 20060623
  Transmission Date: 20061208
  Serious: Yes (Hospitalization)
  Sender: FDA-Public Use
  Company Number: 2006-06-1902

PATIENT
  Sex: Female

DRUGS (6)
  1. PROVENTIL [Suspect]
     Indication: ASTHMA
     Dosage: 2 PUFFS PRN ORAL AER INH
     Route: 055
  2. PROVENTIL [Suspect]
     Indication: OBSTRUCTIVE AIRWAYS DISORDER
     Dosage: 2 PUFFS PRN ORAL AER INH
     Route: 055
  3. VENTOLIN [Suspect]
     Indication: ASTHMA
  4. ADVAIR DISKUS 100/50 [Concomitant]
  5. AVELOX [Concomitant]
  6. SYNTHROID [Concomitant]

REACTIONS (3)
  - HYPERSENSITIVITY [None]
  - OESOPHAGEAL DISORDER [None]
  - VOMITING [None]
